FAERS Safety Report 14172033 (Version 11)
Quarter: 2018Q1

REPORT INFORMATION
  Report Type: Report from Study
  Country: None (occurrence: SE)
  Receive Date: 20171108
  Receipt Date: 20180222
  Transmission Date: 20180508
  Serious: Yes (Hospitalization, Other)
  Sender: FDA-Public Use
  Company Number: SE-ABBVIE-17K-150-2154040-00

PATIENT
  Age: 76 Year
  Sex: Male
  Weight: 64 kg

DRUGS (6)
  1. DUODOPA [Suspect]
     Active Substance: CARBIDOPA\LEVODOPA
     Route: 050
     Dates: start: 20171127
  2. DUODOPA [Suspect]
     Active Substance: CARBIDOPA\LEVODOPA
     Route: 050
     Dates: start: 20180208
  3. DUODOPA [Suspect]
     Active Substance: CARBIDOPA\LEVODOPA
     Indication: PARKINSON^S DISEASE
     Route: 050
     Dates: start: 20171009, end: 2017
  4. VITAMIN B12 [Concomitant]
     Active Substance: CYANOCOBALAMIN
     Indication: PRODUCT USED FOR UNKNOWN INDICATION
  5. RASAGILIN [Concomitant]
     Indication: PARKINSON^S DISEASE
  6. PARACETAMOL [Concomitant]
     Active Substance: ACETAMINOPHEN
     Indication: ANALGESIC THERAPY

REACTIONS (18)
  - Faeces discoloured [Not Recovered/Not Resolved]
  - Arthralgia [Unknown]
  - Arthralgia [Recovering/Resolving]
  - Haemoglobin decreased [Recovered/Resolved]
  - Stoma site ulcer [Recovered/Resolved]
  - Wound [Unknown]
  - Fasciitis [Unknown]
  - Femoral neck fracture [Recovering/Resolving]
  - Fall [Not Recovered/Not Resolved]
  - Dermatitis [Recovering/Resolving]
  - Arthritis infective [Recovered/Resolved]
  - Medical device site discharge [Not Recovered/Not Resolved]
  - Skin oedema [Unknown]
  - Abdominal pain [Not Recovered/Not Resolved]
  - Stoma site haemorrhage [Recovered/Resolved]
  - Pulmonary oedema [Not Recovered/Not Resolved]
  - Haemorrhage [Not Recovered/Not Resolved]
  - Infection [Not Recovered/Not Resolved]

NARRATIVE: CASE EVENT DATE: 2017
